FAERS Safety Report 25549750 (Version 5)
Quarter: 2025Q4

REPORT INFORMATION
  Report Type: Report from Study
  Country: US (occurrence: US)
  Receive Date: 20250714
  Receipt Date: 20251201
  Transmission Date: 20260117
  Serious: Yes (Disabling)
  Sender: MALLINCKRODT
  Company Number: US-MALLINCKRODT-MNK202504118

PATIENT
  Sex: Male

DRUGS (2)
  1. CORTICOTROPIN [Suspect]
     Active Substance: CORTICOTROPIN
     Indication: Systemic lupus erythematosus
     Dosage: 80 UNITS
     Route: 058
     Dates: start: 202503
  2. WARFARIN [Suspect]
     Active Substance: WARFARIN
     Indication: Product used for unknown indication

REACTIONS (10)
  - Disability [Not Recovered/Not Resolved]
  - Migraine [Unknown]
  - Pain [Not Recovered/Not Resolved]
  - Dry mouth [Not Recovered/Not Resolved]
  - Neck pain [Unknown]
  - Musculoskeletal stiffness [Recovering/Resolving]
  - Fatigue [Not Recovered/Not Resolved]
  - Injection site discolouration [Unknown]
  - Swelling [Recovering/Resolving]
  - Injection site pain [Not Recovered/Not Resolved]
